FAERS Safety Report 9672218 (Version 1)
Quarter: 2013Q4

REPORT INFORMATION
  Report Type: Spontaneous
  Country: CA (occurrence: None)
  Receive Date: 20131105
  Receipt Date: 20131105
  Transmission Date: 20140711
  Serious: Yes (Other)
  Sender: FDA-Public Use
  Company Number: VAL_02793_2013

PATIENT
  Sex: Female

DRUGS (1)
  1. ROCALTROL [Suspect]
     Indication: HYPOCALCAEMIA
     Dosage: (2X3PER WEEK ORAL)
     Dates: start: 2010, end: 201203

REACTIONS (3)
  - Blood calcium decreased [None]
  - Blood parathyroid hormone increased [None]
  - Medication residue present [None]
